FAERS Safety Report 16088359 (Version 1)
Quarter: 2019Q2

REPORT INFORMATION
  Report Type: Spontaneous
  Country: US (occurrence: US)
  Receive Date: 20190319
  Receipt Date: 20190319
  Transmission Date: 20190711
  Serious: Yes (Hospitalization)
  Sender: FDA-Public Use
  Company Number: None

PATIENT
  Age: 23 Year
  Sex: Female
  Weight: 63 kg

DRUGS (1)
  1. XANAX [Suspect]
     Active Substance: ALPRAZOLAM
     Indication: ANXIETY
     Dosage: ?          QUANTITY:1 TABLET(S);OTHER FREQUENCY:ONCE AT ER;?
     Route: 048
     Dates: start: 20181221, end: 20181222

REACTIONS (11)
  - Hallucination [None]
  - Confusional state [None]
  - Negative thoughts [None]
  - Chest pain [None]
  - Dyspnoea [None]
  - Anxiety [None]
  - Delusion [None]
  - Paranoia [None]
  - Fear of death [None]
  - Palpitations [None]
  - Memory impairment [None]

NARRATIVE: CASE EVENT DATE: 20181221
